FAERS Safety Report 16340284 (Version 3)
Quarter: 2020Q2

REPORT INFORMATION
  Report Type: Spontaneous
  Country: FR (occurrence: FR)
  Receive Date: 20190522
  Receipt Date: 20200608
  Transmission Date: 20200713
  Serious: Yes (Hospitalization)
  Sender: FDA-Public Use
  Company Number: FR-TEVA-2019-FR-1051740

PATIENT
  Age: 48 Year
  Sex: Female
  Weight: 56 kg

DRUGS (9)
  1. CARBOPLATINE ACCORD [Suspect]
     Active Substance: CARBOPLATIN
     Indication: OVARIAN CANCER
     Route: 065
     Dates: start: 20190409, end: 20190409
  2. METHYLPREDNISOLONE MYLAN [Concomitant]
     Active Substance: METHYLPREDNISOLONE
     Indication: PREMEDICATION
     Route: 042
     Dates: start: 20190409, end: 20190409
  3. EMEND [Concomitant]
     Active Substance: APREPITANT
     Route: 048
     Dates: start: 20190409, end: 20190409
  4. AZANTAC INJECTABLE 50 MG/2 ML, SOLUTION INJECTABLE EN AMPOULE [Concomitant]
     Active Substance: RANITIDINE HYDROCHLORIDE
     Indication: PREMEDICATION
     Dosage: AZANTAC INJECTABLE 50 MG/2 ML, SOLUTION INJECTABLE EN AMPOULE
     Route: 042
     Dates: start: 20190409, end: 20190409
  5. EMEND [Concomitant]
     Active Substance: APREPITANT
     Route: 048
     Dates: start: 20190409, end: 20190409
  6. EMEND [Concomitant]
     Active Substance: APREPITANT
     Indication: PREMEDICATION
     Route: 048
     Dates: start: 20190410, end: 20190411
  7. ONDANSETRON [Concomitant]
     Active Substance: ONDANSETRON
     Indication: PREMEDICATION
     Route: 042
     Dates: start: 20190409, end: 20190409
  8. POLARAMINE [Concomitant]
     Active Substance: DEXCHLORPHENIRAMINE MALEATE
     Indication: PREMEDICATION
     Route: 042
     Dates: start: 20190409, end: 20190409
  9. PACLITAXEL. [Suspect]
     Active Substance: PACLITAXEL
     Indication: OVARIAN CANCER
     Route: 042
     Dates: start: 20190409, end: 20190409

REACTIONS (3)
  - Hypersensitivity [Recovered/Resolved]
  - Coma [Recovered/Resolved]
  - Seizure [Recovered/Resolved]

NARRATIVE: CASE EVENT DATE: 20190409
